FAERS Safety Report 19685939 (Version 2)
Quarter: 2021Q3

REPORT INFORMATION
  Report Type: Report from Study
  Country: CA (occurrence: CA)
  Receive Date: 20210811
  Receipt Date: 20210927
  Transmission Date: 20211014
  Serious: Yes (Hospitalization, Other)
  Sender: FDA-Public Use
  Company Number: CA-GLAXOSMITHKLINE-CA2021AMR168956

PATIENT
  Age: 73 Year
  Sex: Male

DRUGS (2)
  1. NITROGLYCERINE [Suspect]
     Active Substance: NITROGLYCERIN
     Indication: PRODUCT USED FOR UNKNOWN INDICATION
     Dosage: 1 PUFF(S)
  2. MEPOLIZUMAB [Suspect]
     Active Substance: MEPOLIZUMAB
     Indication: ASTHMA
     Dosage: 100 MG, Z (EVERY 4 WEEKS)
     Route: 058
     Dates: start: 20170426

REACTIONS (12)
  - Asthma [Unknown]
  - Insomnia [Unknown]
  - Dyspnoea exertional [Unknown]
  - Swelling face [Not Recovered/Not Resolved]
  - Product dose omission issue [Unknown]
  - Gastrointestinal disorder [Unknown]
  - Drug ineffective [Unknown]
  - Chest pain [Unknown]
  - Dysphonia [Not Recovered/Not Resolved]
  - Acute respiratory distress syndrome [Recovered/Resolved]
  - Cyanosis [Not Recovered/Not Resolved]
  - Breath sounds abnormal [Not Recovered/Not Resolved]

NARRATIVE: CASE EVENT DATE: 2021
